FAERS Safety Report 9699013 (Version 1)
Quarter: 2013Q4

REPORT INFORMATION
  Report Type: Spontaneous
  Country: US (occurrence: US)
  Receive Date: 20131120
  Receipt Date: 20131120
  Transmission Date: 20140711
  Serious: Yes (Other)
  Sender: FDA-Public Use
  Company Number: US-ELI_LILLY_AND_COMPANY-US201311004219

PATIENT
  Age: 43 Year
  Sex: Male

DRUGS (1)
  1. INSULIN HUMAN [Suspect]
     Indication: PRODUCT USED FOR UNKNOWN INDICATION
     Dosage: UNK
     Route: 058

REACTIONS (3)
  - Concussion [Unknown]
  - Glycosylated haemoglobin increased [Unknown]
  - Wrong technique in drug usage process [Not Recovered/Not Resolved]
